FAERS Safety Report 5051830-7 (Version None)
Quarter: 2006Q3

REPORT INFORMATION
  Report Type: 
  Country: None (occurrence: None)
  Receive Date: 20060712
  Receipt Date: 20060712
  Transmission Date: 20061208
  Serious: Yes (Other)
  Sender: FDA-Public Use
  Company Number: None

PATIENT
  Sex: Male
  Weight: 64.184 kg

DRUGS (3)
  1. AMIFOSTINE [Suspect]
     Indication: SQUAMOUS CELL CARCINOMA
     Dosage: SQ 500 MG M-F [11 DOSES SINCE 6/11/06]
     Route: 058
     Dates: start: 20060611
  2. REGLAN [Concomitant]
  3. COMPAZINE [Concomitant]

REACTIONS (3)
  - PRURITUS [None]
  - RASH ERYTHEMATOUS [None]
  - RASH PAPULAR [None]
